FAERS Safety Report 14070088 (Version 1)
Quarter: 2017Q4

REPORT INFORMATION
  Report Type: Spontaneous
  Country: US (occurrence: None)
  Receive Date: 20171010
  Receipt Date: 20171010
  Transmission Date: 20180321
  Serious: No
  Sender: FDA-Public Use
  Company Number: None

PATIENT
  Sex: Female

DRUGS (2)
  1. CLINDAMYCIN HCL [Suspect]
     Active Substance: CLINDAMYCIN HYDROCHLORIDE
  2. CELECOXIB. [Suspect]
     Active Substance: CELECOXIB

REACTIONS (8)
  - Pain [None]
  - Change of bowel habit [None]
  - Product label on wrong product [None]
  - Decreased appetite [None]
  - Wrong drug administered [None]
  - Transcription medication error [None]
  - Weight increased [None]
  - Drug dispensing error [None]

NARRATIVE: CASE EVENT DATE: 2017
